FAERS Safety Report 19040540 (Version 2)
Quarter: 2021Q2

REPORT INFORMATION
  Report Type: Spontaneous
  Country: US (occurrence: US)
  Receive Date: 20210323
  Receipt Date: 20210414
  Transmission Date: 20210717
  Serious: Yes (Hospitalization, Other)
  Sender: FDA-Public Use
  Company Number: US-35507-2021-03540

PATIENT
  Age: 25 Year
  Sex: Female

DRUGS (3)
  1. DROSPIRENONE AND ETHINYL ESTRADIOL [Suspect]
     Active Substance: DROSPIRENONE\ETHINYL ESTRADIOL
     Indication: ORAL CONTRACEPTION
     Dosage: SHE HAD BEEN TAKING DROSPIRENONE/ETHINYLESTRADIOL SINCE AGE 19.
     Route: 048
  2. ASPIRINE [Concomitant]
     Active Substance: ASPIRIN
     Indication: PRODUCT USED FOR UNKNOWN INDICATION
     Dosage: UNK
     Route: 065
  3. HEPARIN [Concomitant]
     Active Substance: HEPARIN SODIUM
     Indication: PRODUCT USED FOR UNKNOWN INDICATION
     Dosage: UNK (STOPPED)
     Route: 042

REACTIONS (3)
  - Hypercoagulation [Recovered/Resolved]
  - Renal infarct [Unknown]
  - Arterial thrombosis [Recovered/Resolved]
